FAERS Safety Report 7170019-9 (Version None)
Quarter: 2010Q4

REPORT INFORMATION
  Report Type: 
  Country: None (occurrence: None)
  Receive Date: 20101214
  Receipt Date: 20101214
  Transmission Date: 20110411
  Serious: Yes (Disabling)
  Sender: FDA-Public Use
  Company Number: None

PATIENT
  Sex: Female
  Weight: 92.0802 kg

DRUGS (2)
  1. RECLAST [Suspect]
     Indication: OSTEOPENIA
     Dosage: RECLAST 1ST DOSE EVERY 2 YEAR I.V.
     Route: 042
     Dates: start: 20100901
  2. RECLAST [Suspect]
     Indication: OSTEOPOROSIS
     Dosage: RECLAST 1ST DOSE EVERY 2 YEAR I.V.
     Route: 042
     Dates: start: 20100901

REACTIONS (2)
  - ANAEMIA [None]
  - RENAL FAILURE ACUTE [None]
